FAERS Safety Report 18611172 (Version 2)
Quarter: 2022Q4

REPORT INFORMATION
  Report Type: Spontaneous
  Country: US (occurrence: US)
  Receive Date: 20201214
  Receipt Date: 20221121
  Transmission Date: 20230113
  Serious: No
  Sender: FDA-Public Use
  Company Number: US-PFIZER INC-2020490157

PATIENT
  Age: 59 Year
  Sex: Female

DRUGS (1)
  1. IBRANCE [Suspect]
     Active Substance: PALBOCICLIB
     Dosage: UNK
     Dates: start: 20160223

REACTIONS (7)
  - Dry skin [Unknown]
  - Skin fissures [Unknown]
  - Neoplasm progression [Unknown]
  - Glossitis [Unknown]
  - Stomatitis [Unknown]
  - Arthralgia [Unknown]
  - Bone pain [Unknown]
